FAERS Safety Report 8532559-7 (Version None)
Quarter: 2012Q3

REPORT INFORMATION
  Report Type: 
  Country: None (occurrence: None)
  Receive Date: 20120724
  Receipt Date: 20120719
  Transmission Date: 20120928
  Serious: No
  Sender: FDA-Public Use
  Company Number: US-PFIZER INC-2012175832

PATIENT
  Sex: Male

DRUGS (1)
  1. AVINZA [Suspect]
     Indication: NECK SURGERY
     Dosage: 180 MG (TWO 90MG CAPSULES ), 1X/DAY
     Route: 048
     Dates: start: 20050101

REACTIONS (4)
  - DRUG INEFFECTIVE [None]
  - MIGRAINE [None]
  - WEIGHT DECREASED [None]
  - FEELING HOT [None]
